FAERS Safety Report 15433785 (Version 1)
Quarter: 2018Q3

REPORT INFORMATION
  Report Type: Spontaneous
  Country: US (occurrence: US)
  Receive Date: 20180921
  Receipt Date: 20180921
  Transmission Date: 20181010
  Serious: Yes (Other)
  Sender: FDA-Public Use
  Company Number: None

PATIENT
  Age: 77 Year
  Sex: Male

DRUGS (2)
  1. YESCARTA [Suspect]
     Active Substance: AXICABTAGENE CILOLEUCEL
     Indication: DIFFUSE LARGE B-CELL LYMPHOMA RECURRENT
     Dosage: ?          OTHER DOSE:MAX 2 X 10^8 CAR T;?
     Route: 042
     Dates: start: 20180530
  2. YESCARTA [Suspect]
     Active Substance: AXICABTAGENE CILOLEUCEL
     Indication: DIFFUSE LARGE B-CELL LYMPHOMA REFRACTORY
     Dosage: ?          OTHER DOSE:MAX 2 X 10^8 CAR T;?
     Route: 042
     Dates: start: 20180530

REACTIONS (2)
  - Cytokine release syndrome [None]
  - Histiocytosis haematophagic [None]

NARRATIVE: CASE EVENT DATE: 20180530
